FAERS Safety Report 18183171 (Version 1)
Quarter: 2020Q3

REPORT INFORMATION
  Report Type: Spontaneous
  Country: US (occurrence: US)
  Receive Date: 20200821
  Receipt Date: 20200821
  Transmission Date: 20201103
  Serious: Yes (Hospitalization, Other)
  Sender: FDA-Public Use
  Company Number: US-GILEAD-2020-0491008

PATIENT
  Age: 49 Year
  Sex: Male

DRUGS (2)
  1. ATRIPLA [Suspect]
     Active Substance: EFAVIRENZ\EMTRICITABINE\TENOFOVIR DISOPROXIL FUMARATE
     Indication: HIV INFECTION
     Dosage: UNK
     Route: 048
     Dates: start: 20110707, end: 20180124
  2. ODEFSEY [Concomitant]
     Active Substance: EMTRICITABINE\RILPIVIRINE HYDROCHLORIDE\TENOFOVIR ALAFENAMIDE FUMARATE

REACTIONS (10)
  - Radius fracture [Recovered/Resolved]
  - Osteoporosis [Not Recovered/Not Resolved]
  - Forearm fracture [Recovered/Resolved]
  - Lower limb fracture [Not Recovered/Not Resolved]
  - Limb fracture [Recovered/Resolved]
  - Bone density decreased [Unknown]
  - Femur fracture [Recovered/Resolved]
  - Chronic kidney disease [Unknown]
  - Fracture nonunion [Recovered/Resolved]
  - Vitamin D deficiency [Unknown]

NARRATIVE: CASE EVENT DATE: 20161109
